FAERS Safety Report 7060341-9 (Version None)
Quarter: 2010Q4

REPORT INFORMATION
  Report Type: 
  Country: None (occurrence: None)
  Receive Date: 20101025
  Receipt Date: 20101014
  Transmission Date: 20110411
  Serious: Yes (Hospitalization)
  Sender: FDA-Public Use
  Company Number: B0658466A

PATIENT
  Sex: Male
  Weight: 48 kg

DRUGS (7)
  1. AUGMENTIN '125' [Suspect]
     Dosage: 1125MG PER DAY
     Route: 048
     Dates: start: 20100522, end: 20100526
  2. BIOFERMIN R [Concomitant]
     Route: 048
  3. LOXONIN [Concomitant]
     Indication: ANALGESIC THERAPY
     Route: 048
  4. CLARITHROMYCIN [Concomitant]
     Dosage: 400MG PER DAY
     Route: 048
     Dates: start: 20100517, end: 20100521
  5. DASEN [Concomitant]
     Dosage: 30MG PER DAY
     Route: 048
     Dates: start: 20100517, end: 20100521
  6. PA [Concomitant]
     Indication: NASOPHARYNGITIS
     Dosage: 3IUAX PER DAY
     Route: 048
     Dates: start: 20100517, end: 20100521
  7. CALONAL [Concomitant]
     Indication: ANALGESIC THERAPY
     Dosage: 300MG PER DAY
     Route: 048
     Dates: start: 20100517, end: 20100517

REACTIONS (10)
  - CHEILITIS [None]
  - CONJUNCTIVAL HAEMORRHAGE [None]
  - ERYTHEMA [None]
  - GENERALISED OEDEMA [None]
  - LIP EROSION [None]
  - LIP SWELLING [None]
  - MOUTH HAEMORRHAGE [None]
  - OROPHARYNGEAL PAIN [None]
  - RASH [None]
  - STEVENS-JOHNSON SYNDROME [None]
